FAERS Safety Report 6248258-0 (Version None)
Quarter: 2009Q2

REPORT INFORMATION
  Report Type: 
  Country: None (occurrence: None)
  Receive Date: 20090625
  Receipt Date: 20090625
  Transmission Date: 20091009
  Serious: Yes (Other)
  Sender: FDA-Public Use
  Company Number: None

PATIENT
  Age: 22 Year
  Sex: Female
  Weight: 64.5 kg

DRUGS (1)
  1. INFLIXIMAB [Suspect]
     Indication: CROHN'S DISEASE
     Dosage: 600 MG EVERY 8 WEEKS IV EVERY 8 WEEKS SINCE 9/5/08
     Route: 042
     Dates: start: 20080905

REACTIONS (6)
  - CHEILITIS [None]
  - EYE PRURITUS [None]
  - INFUSION RELATED REACTION [None]
  - LIP SWELLING [None]
  - PRURITUS [None]
  - URTICARIA [None]
